FAERS Safety Report 5101506-2 (Version None)
Quarter: 2006Q3

REPORT INFORMATION
  Report Type: 
  Country: None (occurrence: None)
  Receive Date: 20060911
  Receipt Date: 20060829
  Transmission Date: 20061208
  Serious: Yes (Disabling)
  Sender: FDA-Public Use
  Company Number: 2006GB01548

PATIENT
  Sex: Male
  Weight: 70 kg

DRUGS (3)
  1. CASODEX [Suspect]
     Indication: PROSTATE CANCER
     Route: 048
     Dates: start: 20060301, end: 20060401
  2. CETIRIZINE HCL [Concomitant]
     Route: 048
  3. ZOLADEX [Concomitant]
     Route: 058

REACTIONS (1)
  - DUPUYTREN'S CONTRACTURE [None]
